FAERS Safety Report 8125599-3 (Version None)
Quarter: 2012Q1

REPORT INFORMATION
  Report Type: 
  Country: None (occurrence: None)
  Receive Date: 20120209
  Receipt Date: 20120203
  Transmission Date: 20120608
  Serious: Yes (Other)
  Sender: FDA-Public Use
  Company Number: US-PFIZER INC-2011203094

PATIENT
  Sex: Male

DRUGS (1)
  1. CHANTIX [Suspect]
     Indication: SMOKING CESSATION THERAPY
     Dosage: 1 MG, UNK
     Dates: start: 20080109, end: 20080201

REACTIONS (11)
  - ANGER [None]
  - ANXIETY [None]
  - THINKING ABNORMAL [None]
  - INSOMNIA [None]
  - HEADACHE [None]
  - EMOTIONAL DISORDER [None]
  - SINUS DISORDER [None]
  - FRUSTRATION [None]
  - DEPRESSION [None]
  - ABNORMAL BEHAVIOUR [None]
  - NIGHTMARE [None]
